FAERS Safety Report 20911971 (Version 1)
Quarter: 2022Q2

REPORT INFORMATION
  Report Type: Spontaneous
  Country: US (occurrence: US)
  Receive Date: 20220603
  Receipt Date: 20220603
  Transmission Date: 20220721
  Serious: No
  Sender: FDA-Public Use
  Company Number: US-TEVA-2022-US-2038838

PATIENT
  Age: 60 Year
  Sex: Female
  Weight: 79.38 kg

DRUGS (10)
  1. AUSTEDO [Suspect]
     Active Substance: DEUTETRABENAZINE
     Indication: Parkinsonism
     Dosage: (TWO 9 MG TABLETS) TWICE DAILY
     Route: 065
     Dates: start: 202103
  2. AMLODIPINE [Concomitant]
     Active Substance: AMLODIPINE BESYLATE
  3. BUPROPION [Concomitant]
     Active Substance: BUPROPION
  4. AMBIEN [Concomitant]
     Active Substance: ZOLPIDEM TARTRATE
  5. SPIRONOLACTONE [Concomitant]
     Active Substance: SPIRONOLACTONE
  6. TRULICITY [Concomitant]
     Active Substance: DULAGLUTIDE
  7. CARVEDILOL [Concomitant]
     Active Substance: CARVEDILOL
  8. IRBESARTAN [Concomitant]
     Active Substance: IRBESARTAN
  9. EZETIMIBE [Concomitant]
     Active Substance: EZETIMIBE
  10. LEVOTHYROXINE [Concomitant]
     Active Substance: LEVOTHYROXINE

REACTIONS (7)
  - Device use issue [Unknown]
  - Confusional state [Not Recovered/Not Resolved]
  - Somnolence [Not Recovered/Not Resolved]
  - Adverse event [Unknown]
  - Photosensitivity reaction [Recovered/Resolved]
  - Muscle contractions involuntary [Recovered/Resolved]
  - Somnambulism [Recovered/Resolved]

NARRATIVE: CASE EVENT DATE: 20220515
